FAERS Safety Report 20382214 (Version 1)
Quarter: 2022Q1

REPORT INFORMATION
  Report Type: Spontaneous
  Country: US (occurrence: US)
  Receive Date: 20220127
  Receipt Date: 20220127
  Transmission Date: 20220423
  Serious: No
  Sender: FDA-Public Use
  Company Number: US-PCCINC-2021-PEL-000872

PATIENT

DRUGS (1)
  1. GABLOFEN [Suspect]
     Active Substance: BACLOFEN
     Indication: Product used for unknown indication
     Dosage: 916.8 MICROGRAM/DAY
     Route: 037

REACTIONS (6)
  - Mental status changes [Unknown]
  - Withdrawal syndrome [Unknown]
  - Overdose [Unknown]
  - Product administration error [Unknown]
  - Device kink [Unknown]
  - Device infusion issue [Unknown]
